FAERS Safety Report 7379024-0 (Version None)
Quarter: 2011Q1

REPORT INFORMATION
  Report Type: 
  Country: None (occurrence: None)
  Receive Date: 20110324
  Receipt Date: 20110324
  Transmission Date: 20110831
  Serious: Yes (Disabling)
  Sender: FDA-Public Use
  Company Number: None

PATIENT
  Age: 73 Year
  Sex: Female
  Weight: 72.5755 kg

DRUGS (1)
  1. TAMOXIFEN CITRATE [Suspect]
     Dates: start: 20100105, end: 20110206

REACTIONS (3)
  - DEAFNESS UNILATERAL [None]
  - EAR DISCOMFORT [None]
  - HYPOACUSIS [None]
